FAERS Safety Report 10505740 (Version 1)
Quarter: 2014Q4

REPORT INFORMATION
  Report Type: Spontaneous
  Country: US (occurrence: US)
  Receive Date: 20141008
  Receipt Date: 20141008
  Transmission Date: 20150528
  Serious: Yes (Disabling, Other)
  Sender: FDA-Public Use
  Company Number: US-TEVA-513371USA

PATIENT
  Sex: Female

DRUGS (1)
  1. PARAGARD T380A [Suspect]
     Active Substance: COPPER
     Route: 015

REACTIONS (8)
  - Wrong device used [Unknown]
  - Haemorrhage [Unknown]
  - Pain [Unknown]
  - Uterine perforation [Unknown]
  - Scar [Unknown]
  - Device dislocation [Unknown]
  - Pelvic organ injury [Unknown]
  - Abdominal injury [Unknown]

NARRATIVE: CASE EVENT DATE: 20120430
